FAERS Safety Report 9642472 (Version 1)
Quarter: 2013Q4

REPORT INFORMATION
  Report Type: Report from Study
  Country: ZA (occurrence: ZA)
  Receive Date: 20131024
  Receipt Date: 20131024
  Transmission Date: 20140711
  Serious: Yes (Death)
  Sender: FDA-Public Use
  Company Number: ZA-ROCHE-1293189

PATIENT
  Sex: Male

DRUGS (2)
  1. MIRCERA [Suspect]
     Indication: NEPHROGENIC ANAEMIA
     Dosage: 150 MCG X 6 DOSES
     Route: 058
  2. MIRCERA [Suspect]
     Dosage: X 2 DOSES
     Route: 058
     Dates: start: 201304, end: 201306

REACTIONS (1)
  - Multi-organ failure [Fatal]
